FAERS Safety Report 8571833-5 (Version None)
Quarter: 2012Q3

REPORT INFORMATION
  Report Type: 
  Country: None (occurrence: None)
  Receive Date: 20120806
  Receipt Date: 20120802
  Transmission Date: 20120928
  Serious: Yes (Hospitalization, Other)
  Sender: FDA-Public Use
  Company Number: PHEH2008US03152

PATIENT
  Sex: Female

DRUGS (11)
  1. ZOMETA [Suspect]
     Indication: METASTASES TO BONE
     Route: 042
  2. ZOFRAN [Concomitant]
  3. MORPHINE SULFATE [Concomitant]
     Dosage: 40 MG, UNK
  4. PROTONIX [Concomitant]
  5. METHADONE HCL [Concomitant]
  6. CRESTOR [Concomitant]
  7. AVINZA [Concomitant]
  8. ARMODAFINIL [Concomitant]
  9. XANAX [Concomitant]
  10. AREDIA [Suspect]
     Route: 042
  11. COMBIVENT [Concomitant]

REACTIONS (65)
  - INFECTION [None]
  - PHYSICAL DISABILITY [None]
  - METASTASES TO BONE [None]
  - METASTASES TO LIVER [None]
  - METASTASES TO CENTRAL NERVOUS SYSTEM [None]
  - COLONIC POLYP [None]
  - MENTAL STATUS CHANGES [None]
  - EMPHYSEMA [None]
  - HEPATIC STEATOSIS [None]
  - OSTEONECROSIS OF JAW [None]
  - ANXIETY [None]
  - DIABETES MELLITUS [None]
  - NEOPLASM MALIGNANT [None]
  - BREAST MASS [None]
  - PATHOLOGICAL FRACTURE [None]
  - OTITIS EXTERNA [None]
  - DIARRHOEA [None]
  - OBESITY [None]
  - OSTEOPOROSIS [None]
  - GAIT DISTURBANCE [None]
  - FEMUR FRACTURE [None]
  - EMOTIONAL DISTRESS [None]
  - CHRONIC OBSTRUCTIVE PULMONARY DISEASE [None]
  - RESPIRATORY TRACT INFECTION [None]
  - DIZZINESS [None]
  - ARTHRALGIA [None]
  - FALL [None]
  - CEREBROVASCULAR ACCIDENT [None]
  - ORAL CANDIDIASIS [None]
  - PELVIC PAIN [None]
  - MUSCULOSKELETAL CHEST PAIN [None]
  - DYSPNOEA [None]
  - HYPOPHAGIA [None]
  - MULTIPLE MYELOMA [None]
  - BONE LOSS [None]
  - DEPRESSION [None]
  - BRONCHITIS [None]
  - PORTAL VEIN THROMBOSIS [None]
  - PRODUCTIVE COUGH [None]
  - ABDOMINAL PAIN [None]
  - PAIN [None]
  - ASTHMA [None]
  - LYMPHADENOPATHY [None]
  - DIABETES MELLITUS INADEQUATE CONTROL [None]
  - METASTASES TO LUNG [None]
  - GASTROOESOPHAGEAL REFLUX DISEASE [None]
  - FATIGUE [None]
  - DEHYDRATION [None]
  - PNEUMONIA [None]
  - URINARY TRACT INFECTION [None]
  - COLON CANCER [None]
  - CONFUSIONAL STATE [None]
  - SCAR [None]
  - INJURY [None]
  - HIATUS HERNIA [None]
  - NAUSEA [None]
  - OEDEMA PERIPHERAL [None]
  - DECREASED APPETITE [None]
  - PYREXIA [None]
  - JAW FRACTURE [None]
  - ARTHRITIS [None]
  - NEOPLASM PROGRESSION [None]
  - METASTASES TO SPINE [None]
  - HEADACHE [None]
  - BACK PAIN [None]
